FAERS Safety Report 5749718-9 (Version None)
Quarter: 2008Q2

REPORT INFORMATION
  Report Type: 
  Country: None (occurrence: None)
  Receive Date: 20080527
  Receipt Date: 20080521
  Transmission Date: 20081010
  Serious: Yes (Other)
  Sender: FDA-Public Use
  Company Number: US-PURDUE-USA_2008_0032158

PATIENT
  Sex: Male

DRUGS (3)
  1. OXYCONTIN [Suspect]
     Indication: PAIN
     Dosage: 20 MG, QID
     Dates: start: 20010101
  2. VIAGRA [Concomitant]
     Indication: ERECTILE DYSFUNCTION
     Dosage: UNK, PRN
  3. CIALIS [Concomitant]
     Indication: ERECTILE DYSFUNCTION
     Dosage: UNK, PRN

REACTIONS (3)
  - DENTAL CARIES [None]
  - TOOTH FRACTURE [None]
  - TOOTH LOSS [None]
